FAERS Safety Report 6904043-5 (Version None)
Quarter: 2010Q3

REPORT INFORMATION
  Report Type: 
  Country: None (occurrence: None)
  Receive Date: 20100804
  Receipt Date: 20090312
  Transmission Date: 20110219
  Serious: Yes (Other)
  Sender: FDA-Public Use
  Company Number: US-PFIZER INC-2009150974

PATIENT
  Sex: Female

DRUGS (11)
  1. LYRICA [Suspect]
     Indication: PAIN
     Dosage: UNK
     Dates: start: 20071015
  2. LYRICA [Suspect]
     Indication: ILL-DEFINED DISORDER
  3. CYMBALTA [Concomitant]
     Dosage: UNKNOWN
  4. DURAGESIC-100 [Concomitant]
     Dosage: UNKNOWN
  5. ATIVAN [Concomitant]
     Dosage: 1 MG, 3X/DAY
  6. MIDODRINE HYDROCHLORIDE [Concomitant]
     Dosage: 5 MG, AS NEEDED
  7. MIRAPEX [Concomitant]
     Dosage: 0.5 MG, 4X/DAY
  8. PHENERGAN EXPECTORANT W/ CODEINE [Concomitant]
     Dosage: UNKNOWN
  9. NEXIUM [Concomitant]
     Dosage: 40 MG, 1X/DAY
  10. FORADIL [Concomitant]
     Dosage: UNK
  11. ALL OTHER THERAPEUTIC PRODUCTS [Concomitant]
     Dosage: UNK

REACTIONS (2)
  - BLINDNESS UNILATERAL [None]
  - EYE HAEMORRHAGE [None]
